FAERS Safety Report 6102608-4 (Version None)
Quarter: 2009Q1

REPORT INFORMATION
  Report Type: 
  Country: None (occurrence: None)
  Receive Date: 20090304
  Receipt Date: 20081007
  Transmission Date: 20090719
  Serious: No
  Sender: FDA-Public Use
  Company Number: A0750786A

PATIENT
  Age: 70 Year
  Sex: Male

DRUGS (8)
  1. REQUIP [Suspect]
     Indication: PARKINSON'S DISEASE
     Dosage: 4MG THREE TIMES PER DAY
     Route: 048
     Dates: start: 20070101, end: 20080929
  2. REQUIP XL [Suspect]
     Indication: PARKINSON'S DISEASE
     Dosage: 8MG PER DAY
     Route: 048
     Dates: start: 20080929
  3. LEVOTHYROXINE SODIUM [Concomitant]
  4. UNKNOWN MEDICATION [Concomitant]
  5. PREDNISONE [Concomitant]
  6. SINEMET [Concomitant]
  7. ALENDRONATE SODIUM [Concomitant]
  8. FINASTERIDE [Concomitant]

REACTIONS (2)
  - INSOMNIA [None]
  - MIDDLE INSOMNIA [None]
